FAERS Safety Report 14727966 (Version 5)
Quarter: 2018Q2

REPORT INFORMATION
  Report Type: Spontaneous
  Country: CA (occurrence: CA)
  Receive Date: 20180406
  Receipt Date: 20180416
  Transmission Date: 20180711
  Serious: Yes (Other)
  Sender: FDA-Public Use
  Company Number: CA-PFIZER INC-2018139003

PATIENT
  Age: 59 Year
  Sex: Male

DRUGS (3)
  1. ARAVA [Concomitant]
     Active Substance: LEFLUNOMIDE
     Indication: RHEUMATOID ARTHRITIS
     Dosage: 10 MG, 2X/DAY (BID)
  2. PLAQUENIL [Concomitant]
     Active Substance: HYDROXYCHLOROQUINE SULFATE
     Indication: RHEUMATOID ARTHRITIS
     Dosage: 200 MG, TWICE A DAY (BID)
  3. METHOTREXATE SODIUM. [Suspect]
     Active Substance: METHOTREXATE SODIUM
     Indication: RHEUMATOID ARTHRITIS
     Dosage: 20 MG, EVERY WEEK
     Dates: start: 2015, end: 2017

REACTIONS (15)
  - Myocardial infarction [Unknown]
  - Dyspnoea [Unknown]
  - Joint lock [Unknown]
  - Haemoglobin decreased [Unknown]
  - Arthropathy [Unknown]
  - Blood test abnormal [Unknown]
  - Psoriasis [Unknown]
  - Drug effect incomplete [Unknown]
  - Nausea [Unknown]
  - Cardiac failure congestive [Unknown]
  - Drug intolerance [Unknown]
  - Blood iron decreased [Unknown]
  - Pain [Unknown]
  - Pain in extremity [Unknown]
  - Arthralgia [Unknown]

NARRATIVE: CASE EVENT DATE: 2016
